FAERS Safety Report 19847365 (Version 1)
Quarter: 2021Q3

REPORT INFORMATION
  Report Type: Spontaneous
  Country: FR (occurrence: FR)
  Receive Date: 20210917
  Receipt Date: 20210917
  Transmission Date: 20211014
  Serious: Yes (Hospitalization)
  Sender: FDA-Public Use
  Company Number: FR-TEVA-2021-FR-1952226

PATIENT
  Age: 41 Year
  Sex: Female

DRUGS (1)
  1. CLOZAPINE. [Suspect]
     Active Substance: CLOZAPINE
     Indication: SCHIZOPHRENIA
     Dosage: 100MG 1?1?1?5:UNIT DOSE:800MILLIGRAM
     Route: 048
     Dates: start: 202001

REACTIONS (1)
  - Hepatitis fulminant [Not Recovered/Not Resolved]

NARRATIVE: CASE EVENT DATE: 20210621
